FAERS Safety Report 10490185 (Version 2)
Quarter: 2014Q4

REPORT INFORMATION
  Report Type: Spontaneous
  Country: CA (occurrence: CA)
  Receive Date: 20141002
  Receipt Date: 20141017
  Transmission Date: 20150528
  Serious: Yes (Other)
  Sender: FDA-Public Use
  Company Number: CA-BAXTER-2014BAX057885

PATIENT
  Age: 32 Year
  Sex: Male

DRUGS (2)
  1. GAMMAGARD LIQUID [Suspect]
     Active Substance: HUMAN IMMUNOGLOBULIN G
     Indication: OFF LABEL USE
     Route: 042
     Dates: start: 20140807, end: 20140808
  2. GAMMAGARD LIQUID [Suspect]
     Active Substance: HUMAN IMMUNOGLOBULIN G
     Indication: THROMBOCYTOPENIA
     Dosage: 1 VIAL
     Route: 042
     Dates: start: 20140807, end: 20140807

REACTIONS (2)
  - Incorrect drug administration rate [Recovered/Resolved]
  - Febrile nonhaemolytic transfusion reaction [Unknown]

NARRATIVE: CASE EVENT DATE: 20140807
